FAERS Safety Report 9848604 (Version 1)
Quarter: 2014Q1

REPORT INFORMATION
  Report Type: Spontaneous
  Country: US (occurrence: None)
  Receive Date: 20140127
  Receipt Date: 20140127
  Transmission Date: 20141002
  Serious: Yes (Other)
  Sender: FDA-Public Use
  Company Number: None

PATIENT
  Age: 45 Year
  Sex: Male
  Weight: 106.6 kg

DRUGS (1)
  1. TECFIDERA [Suspect]
     Indication: RELAPSING-REMITTING MULTIPLE SCLEROSIS
     Route: 048

REACTIONS (12)
  - Flushing [None]
  - Pruritus [None]
  - Nausea [None]
  - Vomiting [None]
  - Diarrhoea [None]
  - Limb discomfort [None]
  - Pain in extremity [None]
  - Gait disturbance [None]
  - Pyrexia [None]
  - White blood cell count increased [None]
  - Eosinophil percentage increased [None]
  - Deep vein thrombosis [None]
